FAERS Safety Report 9727230 (Version 2)
Quarter: 2014Q1

REPORT INFORMATION
  Report Type: Report from Study
  Country: JP (occurrence: JP)
  Receive Date: 20131203
  Receipt Date: 20140225
  Transmission Date: 20141002
  Serious: Yes (Hospitalization)
  Sender: FDA-Public Use
  Company Number: JP-BAYER-2013-145400

PATIENT
  Age: 60 Year
  Sex: Female

DRUGS (3)
  1. REGORAFENIB [Suspect]
     Indication: COLORECTAL CANCER
     Dosage: 160 MG, QD
     Route: 048
     Dates: start: 20131031, end: 20131119
  2. REGORAFENIB [Suspect]
     Indication: COLORECTAL CANCER
     Dosage: 80 MG, QD
     Route: 048
     Dates: start: 20140109, end: 20140127
  3. VEGIN [Concomitant]
     Indication: DRUG TOXICITY PROPHYLAXIS
     Dosage: UNK
     Route: 061
     Dates: start: 20131101

REACTIONS (4)
  - Diarrhoea [Recovered/Resolved]
  - Abdominal pain [Recovered/Resolved]
  - Hepatic function abnormal [Recovered/Resolved]
  - Alopecia [None]
